FAERS Safety Report 18533999 (Version 1)
Quarter: 2020Q4

REPORT INFORMATION
  Report Type: Report from Study
  Country: None (occurrence: US)
  Receive Date: 20201123
  Receipt Date: 20201123
  Transmission Date: 20210114
  Serious: Yes (Hospitalization, Other)
  Sender: FDA-Public Use
  Company Number: US-INSMED, INC.-US-INS-20-01718

PATIENT
  Age: 66 Year
  Sex: Male

DRUGS (2)
  1. ARIKAYCE [Suspect]
     Active Substance: AMIKACIN
     Indication: MYCOBACTERIAL INFECTION
     Route: 055
     Dates: start: 20200903, end: 20200903
  2. ARIKAYCE [Suspect]
     Active Substance: AMIKACIN
     Route: 055
     Dates: start: 2020, end: 20201103

REACTIONS (13)
  - Lung neoplasm malignant [Not Recovered/Not Resolved]
  - Hospitalisation [Unknown]
  - Productive cough [Not Recovered/Not Resolved]
  - Product dose omission issue [Unknown]
  - Infection [Unknown]
  - Bronchial secretion retention [Unknown]
  - Dyspnoea [Not Recovered/Not Resolved]
  - Diaphragmatic disorder [Unknown]
  - Respiratory tract congestion [Unknown]
  - Bronchospasm [Unknown]
  - Pulmonary oedema [Recovering/Resolving]
  - Dyspnoea [Recovered/Resolved]
  - Arthralgia [Unknown]

NARRATIVE: CASE EVENT DATE: 2020
